FAERS Safety Report 8800684 (Version 2)
Quarter: 2015Q2

REPORT INFORMATION
  Report Type: Report from Study
  Country: US (occurrence: US)
  Receive Date: 20120921
  Receipt Date: 20150622
  Transmission Date: 20150821
  Serious: Yes (Death, Other)
  Sender: FDA-Public Use
  Company Number: US-ROCHE-1123566

PATIENT
  Sex: Male

DRUGS (22)
  1. AVASTIN [Suspect]
     Active Substance: BEVACIZUMAB
     Indication: RENAL CANCER
     Route: 042
     Dates: start: 20050926
  2. AVASTIN [Suspect]
     Active Substance: BEVACIZUMAB
     Indication: MALIGNANT URINARY TRACT NEOPLASM
  3. TARCEVA [Suspect]
     Active Substance: ERLOTINIB HYDROCHLORIDE
     Indication: MALIGNANT URINARY TRACT NEOPLASM
     Route: 065
  4. TARCEVA [Suspect]
     Active Substance: ERLOTINIB HYDROCHLORIDE
     Indication: MALIGNANT URINARY TRACT NEOPLASM
  5. ZOMETA [Concomitant]
     Active Substance: ZOLEDRONIC ACID
  6. ERYTHROPOIETIN [Concomitant]
     Active Substance: ERYTHROPOIETIN
     Dosage: 40000
     Route: 065
  7. WARFARIN [Concomitant]
     Active Substance: WARFARIN
     Route: 065
  8. COLACE [Concomitant]
     Active Substance: DOCUSATE SODIUM
  9. LOVENOX [Concomitant]
     Active Substance: ENOXAPARIN SODIUM
     Route: 065
  10. PROCRIT [Concomitant]
     Active Substance: ERYTHROPOIETIN
  11. PERCOCET [Concomitant]
     Active Substance: ACETAMINOPHEN\OXYCODONE HYDROCHLORIDE
  12. LISINOPRIL. [Concomitant]
     Active Substance: LISINOPRIL
     Route: 065
  13. TYLENOL [Concomitant]
     Active Substance: ACETAMINOPHEN
  14. HYDROCHLOROTHIAZIDE. [Concomitant]
     Active Substance: HYDROCHLOROTHIAZIDE
     Route: 065
  15. IBUPROFEN. [Concomitant]
     Active Substance: IBUPROFEN
  16. LOVENOX [Concomitant]
     Active Substance: ENOXAPARIN SODIUM
     Route: 065
  17. COUMADIN [Concomitant]
     Active Substance: WARFARIN SODIUM
  18. OCUVITE [Concomitant]
     Active Substance: VITAMINS
     Route: 048
  19. MORPHINE [Concomitant]
     Active Substance: MORPHINE
     Route: 065
  20. INTERFERON ALFA-2A [Concomitant]
     Active Substance: INTERFERON ALFA-2A
     Route: 065
  21. ZOLOFT [Concomitant]
     Active Substance: SERTRALINE HYDROCHLORIDE
     Route: 065
  22. PHENERGAN [Concomitant]
     Active Substance: PROMETHAZINE HYDROCHLORIDE

REACTIONS (9)
  - Decreased appetite [Unknown]
  - Off label use [Unknown]
  - Death [Fatal]
  - Arthralgia [Unknown]
  - Pulmonary embolism [Unknown]
  - Nausea [Unknown]
  - Vomiting [Unknown]
  - Metastases to adrenals [Unknown]
  - Diarrhoea [Unknown]
